FAERS Safety Report 8502172-6 (Version None)
Quarter: 2012Q3

REPORT INFORMATION
  Report Type: 
  Country: None (occurrence: None)
  Receive Date: 20120711
  Receipt Date: 20120628
  Transmission Date: 20120928
  Serious: Yes (Hospitalization)
  Sender: FDA-Public Use
  Company Number: US-JNJFOC-20120700390

PATIENT

DRUGS (3)
  1. REMICADE [Suspect]
     Route: 042
     Dates: start: 20101001
  2. REMICADE [Suspect]
     Route: 042
     Dates: start: 20011001
  3. REMICADE [Suspect]
     Indication: PRODUCT USED FOR UNKNOWN INDICATION
     Route: 042
     Dates: start: 20120106

REACTIONS (2)
  - PNEUMONIA [None]
  - INFECTION [None]
